FAERS Safety Report 9849778 (Version 1)
Quarter: 2014Q1

REPORT INFORMATION
  Report Type: Spontaneous
  Country: US (occurrence: None)
  Receive Date: 20140124
  Receipt Date: 20140124
  Transmission Date: 20141002
  Serious: Yes (Death)
  Sender: FDA-Public Use
  Company Number: 2014AP000558

PATIENT
  Age: 64 Year
  Sex: Female

DRUGS (3)
  1. DILT-XR [Suspect]
     Route: 048
  2. TRAZODONE [Suspect]
     Route: 048
  3. ZIPRASIDONE HYDROCHLORIDE [Suspect]
     Route: 048

REACTIONS (2)
  - Completed suicide [None]
  - Cardio-respiratory arrest [None]
